FAERS Safety Report 12198040 (Version 1)
Quarter: 2016Q1

REPORT INFORMATION
  Report Type: Spontaneous
  Country: US (occurrence: None)
  Receive Date: 20160321
  Receipt Date: 20160321
  Transmission Date: 20160526
  Serious: No
  Sender: FDA-Public Use
  Company Number: None

PATIENT
  Age: 19 Year
  Sex: Female
  Weight: 65.77 kg

DRUGS (1)
  1. DEPO-PROVERA [Suspect]
     Active Substance: MEDROXYPROGESTERONE ACETATE
     Dosage: SHOT EVERY 3 MONTHS ONCE EVERY 3 MONTH SHOT

REACTIONS (6)
  - Dyspareunia [None]
  - Irritability [None]
  - Mood swings [None]
  - Weight increased [None]
  - Depression [None]
  - Anger [None]
